FAERS Safety Report 25648747 (Version 2)
Quarter: 2025Q3

REPORT INFORMATION
  Report Type: Report from Study
  Country: CA (occurrence: CA)
  Receive Date: 20250806
  Receipt Date: 20250807
  Transmission Date: 20251020
  Serious: Yes (Life-Threatening, Hospitalization, Other)
  Sender: NOVARTIS
  Company Number: CA-002147023-NVSC2025CA122259

PATIENT
  Age: 54 Year
  Sex: Male

DRUGS (3)
  1. LEQVIO [Suspect]
     Active Substance: INCLISIRAN SODIUM
     Indication: Arteriosclerosis
     Route: 058
     Dates: start: 20230501
  2. LEQVIO [Suspect]
     Active Substance: INCLISIRAN SODIUM
     Indication: Hypercholesterolaemia
     Route: 065
     Dates: start: 20240311
  3. LEQVIO [Suspect]
     Active Substance: INCLISIRAN SODIUM
     Route: 065
     Dates: start: 20250203

REACTIONS (11)
  - Near death experience [Unknown]
  - Type 2 diabetes mellitus [Unknown]
  - Blood glucose increased [Unknown]
  - Asthenia [Unknown]
  - Vertigo [Unknown]
  - Thirst [Unknown]
  - Dry mouth [Unknown]
  - Pollakiuria [Unknown]
  - Dysstasia [Unknown]
  - Insomnia [Unknown]
  - Visual impairment [Unknown]

NARRATIVE: CASE EVENT DATE: 20250301
